FAERS Safety Report 5120554-X (Version None)
Quarter: 2006Q4

REPORT INFORMATION
  Report Type: 
  Country: None (occurrence: None)
  Receive Date: 20061004
  Receipt Date: 20060911
  Transmission Date: 20070319
  Serious: Yes (Hospitalization, Congenital Anomaly)
  Sender: FDA-Public Use
  Company Number: TR-NOVOPROD-257084

PATIENT
  Age: 29 Week
  Sex: Male
  Weight: 1 kg

DRUGS (1)
  1. NOVOLOG MIX 70/30 [Suspect]
     Indication: DIABETES MELLITUS
     Route: 064
     Dates: start: 20050412

REACTIONS (13)
  - BRADYCARDIA NEONATAL [None]
  - CAESAREAN SECTION [None]
  - CONGENITAL CORONARY ARTERY MALFORMATION [None]
  - CYANOSIS NEONATAL [None]
  - DRUG EXPOSURE DURING PREGNANCY [None]
  - ENZYME ABNORMALITY [None]
  - GENITALIA EXTERNAL AMBIGUOUS [None]
  - HEMIVERTEBRA [None]
  - HORSESHOE KIDNEY [None]
  - MULTIPLE CONGENITAL ABNORMALITIES [None]
  - NEONATAL ASPIRATION [None]
  - PREMATURE BABY [None]
  - PREMATURE RUPTURE OF MEMBRANES [None]
